FAERS Safety Report 9767162 (Version 1)
Quarter: 2013Q4

REPORT INFORMATION
  Report Type: Spontaneous
  Country: US (occurrence: None)
  Receive Date: 20131216
  Receipt Date: 20131216
  Transmission Date: 20140711
  Serious: Yes (Life-Threatening)
  Sender: FDA-Public Use
  Company Number: None

PATIENT
  Age: 28 Year
  Sex: Male
  Weight: 60 kg

DRUGS (2)
  1. ZOLPIDEM [Suspect]
  2. ZOLPIDE, 10 MG QHS, FOR 1 YEAR [Concomitant]

REACTIONS (1)
  - Mania [None]
